FAERS Safety Report 5448748-4 (Version None)
Quarter: 2007Q3

REPORT INFORMATION
  Report Type: 
  Country: None (occurrence: None)
  Receive Date: 20070911
  Receipt Date: 20070905
  Transmission Date: 20080115
  Serious: Yes (Other)
  Sender: FDA-Public Use
  Company Number: B0486229A

PATIENT
  Age: 26 Year
  Sex: Male

DRUGS (4)
  1. CETIRIZINE HCL [Suspect]
     Indication: DRUG USE FOR UNKNOWN INDICATION
     Route: 048
  2. LOSARTAN POTASSIUM [Suspect]
  3. UNKNOWN NAME [Suspect]
     Dosage: 1MG TWICE PER DAY
     Route: 048
  4. SALBUTAMOL [Suspect]

REACTIONS (1)
  - CONVULSION [None]
